FAERS Safety Report 6056019-0 (Version None)
Quarter: 2009Q1

REPORT INFORMATION
  Report Type: 
  Country: None (occurrence: None)
  Receive Date: 20090128
  Receipt Date: 20090116
  Transmission Date: 20090719
  Serious: Yes (Hospitalization)
  Sender: FDA-Public Use
  Company Number: US-ELI_LILLY_AND_COMPANY-US200901002690

PATIENT
  Age: 90 Year
  Sex: Female

DRUGS (9)
  1. FORTEO [Suspect]
  2. ASPIRIN                                 /SCH/ [Concomitant]
  3. OSCAL [Concomitant]
  4. CALCIUM                                 /N/A/ [Concomitant]
  5. LIPITOR [Concomitant]
  6. LASIX [Concomitant]
  7. LOPRESSOR [Concomitant]
  8. BENTYL [Concomitant]
  9. LISINOPRIL [Concomitant]

REACTIONS (1)
  - DUODENITIS [None]
